FAERS Safety Report 6658773-3 (Version None)
Quarter: 2010Q1

REPORT INFORMATION
  Report Type: 
  Country: None (occurrence: None)
  Receive Date: 20100330
  Receipt Date: 20100324
  Transmission Date: 20100710
  Serious: Yes (Hospitalization, Other)
  Sender: FDA-Public Use
  Company Number: PHEH2010US03066

PATIENT
  Sex: Female

DRUGS (6)
  1. FEMARA [Suspect]
     Indication: BREAST CANCER
     Dosage: 2.5 MG, QD
     Route: 048
     Dates: start: 20081201
  2. DESVENLAFAXINE [Concomitant]
  3. DIGOXIN [Concomitant]
  4. VITAMIN D [Concomitant]
  5. LABETALOL HCL [Concomitant]
  6. PIOGLITAZONE [Concomitant]

REACTIONS (3)
  - FALL [None]
  - HIP FRACTURE [None]
  - HIP SURGERY [None]
